FAERS Safety Report 15460014 (Version 1)
Quarter: 2018Q4

REPORT INFORMATION
  Report Type: Spontaneous
  Country: FR (occurrence: FR)
  Receive Date: 20181003
  Receipt Date: 20181003
  Transmission Date: 20190204
  Serious: Yes (Disabling, Other)
  Sender: FDA-Public Use
  Company Number: FR-MYLANLABS-2018M1072011

PATIENT
  Age: 67 Year
  Sex: Female
  Weight: 60 kg

DRUGS (8)
  1. LEVOFLOXACIN. [Suspect]
     Active Substance: LEVOFLOXACIN
     Indication: TOOTH DISORDER
     Dosage: 2 DF, UNK
     Route: 048
     Dates: start: 20161116, end: 20161117
  2. LEVOFLOXACIN. [Suspect]
     Active Substance: LEVOFLOXACIN
     Indication: TOOTH DISORDER
     Dosage: UNK
     Route: 051
     Dates: start: 20161115, end: 20161115
  3. PROPOFOL. [Concomitant]
     Active Substance: PROPOFOL
     Indication: PRODUCT USED FOR UNKNOWN INDICATION
     Dosage: UNK
  4. SOLUPRED                           /00016201/ [Concomitant]
     Active Substance: PREDNISOLONE
     Indication: PAIN
     Dosage: UNK
     Route: 065
  5. LEVOFLOXACIN. [Suspect]
     Active Substance: LEVOFLOXACIN
     Indication: NONINFECTIVE GINGIVITIS
     Dosage: UNK
     Route: 051
     Dates: start: 20161115, end: 20161115
  6. LEVOFLOXACIN. [Suspect]
     Active Substance: LEVOFLOXACIN
     Indication: NONINFECTIVE GINGIVITIS
     Dosage: 2 DF, UNK
     Route: 048
     Dates: start: 20161116, end: 20161117
  7. SUFENTA [Concomitant]
     Active Substance: SUFENTANIL CITRATE
     Indication: SEDATIVE THERAPY
     Dosage: UNK
     Route: 042
  8. MIDAZOLAM [Concomitant]
     Active Substance: MIDAZOLAM HYDROCHLORIDE
     Indication: PRODUCT USED FOR UNKNOWN INDICATION
     Dosage: UNK

REACTIONS (33)
  - Chest pain [Not Recovered/Not Resolved]
  - Limb discomfort [Recovered/Resolved]
  - Alopecia [Recovered/Resolved]
  - Fear [Recovering/Resolving]
  - Amyotrophy [Recovered/Resolved]
  - Choking [Recovering/Resolving]
  - Fatigue [Unknown]
  - Dysgeusia [Recovered/Resolved]
  - Musculoskeletal pain [Unknown]
  - Tendon disorder [Unknown]
  - Paraesthesia [Recovering/Resolving]
  - Levator syndrome [Recovered/Resolved]
  - Nervous system disorder [Unknown]
  - Trigeminal nerve disorder [Unknown]
  - Dizziness [Recovered/Resolved]
  - Oedema [Unknown]
  - Vision blurred [Not Recovered/Not Resolved]
  - Visual impairment [Unknown]
  - Aphasia [Recovered/Resolved]
  - Photophobia [Not Recovered/Not Resolved]
  - Anxiety [Recovered/Resolved]
  - Mobility decreased [Recovered/Resolved]
  - Feeling hot [Recovered/Resolved]
  - Depression [Not Recovered/Not Resolved]
  - Suicidal ideation [Recovered/Resolved]
  - Amnesia [Unknown]
  - Pupils unequal [Not Recovered/Not Resolved]
  - Back pain [Recovered/Resolved]
  - Tendon pain [Not Recovered/Not Resolved]
  - Muscle atrophy [Not Recovered/Not Resolved]
  - Disorientation [Recovering/Resolving]
  - Retinal tear [Not Recovered/Not Resolved]
  - Myalgia [Not Recovered/Not Resolved]

NARRATIVE: CASE EVENT DATE: 201611
